FAERS Safety Report 13351760 (Version 1)
Quarter: 2017Q1

REPORT INFORMATION
  Report Type: Spontaneous
  Country: CH (occurrence: CH)
  Receive Date: 20170320
  Receipt Date: 20170320
  Transmission Date: 20170429
  Serious: Yes (Death)
  Sender: FDA-Public Use
  Company Number: CH-BAYER-2017-017063

PATIENT
  Sex: Male
  Weight: 100 kg

DRUGS (2)
  1. BETAFERON [Suspect]
     Active Substance: INTERFERON BETA-1B
     Dosage: 20 ?G, 5ID
  2. VENTAVIS [Suspect]
     Active Substance: ILOPROST
     Dosage: 20 UG/L, 5ID

REACTIONS (1)
  - Death [Fatal]
